FAERS Safety Report 7371182-7 (Version None)
Quarter: 2011Q1

REPORT INFORMATION
  Report Type: 
  Country: None (occurrence: None)
  Receive Date: 20110324
  Receipt Date: 20110316
  Transmission Date: 20110831
  Serious: Yes (Other)
  Sender: FDA-Public Use
  Company Number: FR-ASTELLAS-2011EU001424

PATIENT
  Sex: Female

DRUGS (2)
  1. VESICARE [Suspect]
     Dosage: 1 DF, UNKNOWN/D
     Route: 065
     Dates: start: 20101201
  2. VESICARE [Suspect]
     Indication: HYPERTONIC BLADDER
     Dosage: 5 MG, UNKNOWN/D
     Route: 065
     Dates: start: 20110101

REACTIONS (3)
  - TONGUE DISORDER [None]
  - BRONCHITIS [None]
  - DRY MOUTH [None]
